FAERS Safety Report 7397434-2 (Version None)
Quarter: 2011Q2

REPORT INFORMATION
  Report Type: 
  Country: None (occurrence: None)
  Receive Date: 20110406
  Receipt Date: 20110328
  Transmission Date: 20111010
  Serious: Yes (Hospitalization)
  Sender: FDA-Public Use
  Company Number: US-ASTRAZENECA-2010SE55203

PATIENT
  Age: 65 Year
  Sex: Female

DRUGS (4)
  1. SYMBICORT [Suspect]
     Dosage: 160/4.5 MCG 2 PUFFS BID
     Route: 055
  2. PROVENTIL [Concomitant]
     Indication: EMPHYSEMA
     Dosage: AS NEEDED
  3. SYMBICORT [Suspect]
     Indication: BULLOUS LUNG DISEASE
     Dosage: 640 MCGS TWO PUFFS TWO TIMES A DAY
     Route: 055
     Dates: start: 20100101
  4. SYMBICORT [Suspect]
     Dosage: 640 MCGSTWO PUFFS THREE TIMES A DAY
     Route: 055

REACTIONS (7)
  - PNEUMONIA [None]
  - INCORRECT DOSE ADMINISTERED [None]
  - OSTEOPOROSIS [None]
  - BACK PAIN [None]
  - ABASIA [None]
  - DYSPNOEA [None]
  - DRUG DOSE OMISSION [None]
